FAERS Safety Report 21719135 (Version 1)
Quarter: 2022Q4

REPORT INFORMATION
  Report Type: Spontaneous
  Country: US (occurrence: US)
  Receive Date: 20221213
  Receipt Date: 20221213
  Transmission Date: 20230113
  Serious: Yes (Hospitalization, Other)
  Sender: FDA-Public Use
  Company Number: US-drreddys-SPO/USA/22/0158081

PATIENT
  Age: 26 Year
  Sex: Male

DRUGS (2)
  1. TACROLIMUS [Suspect]
     Active Substance: TACROLIMUS
     Indication: Immunosuppressant drug therapy
  2. MYCOPHENOLIC ACID [Suspect]
     Active Substance: MYCOPHENOLIC ACID
     Indication: Immunosuppressant drug therapy

REACTIONS (5)
  - Polyomavirus-associated nephropathy [Not Recovered/Not Resolved]
  - Kidney fibrosis [Not Recovered/Not Resolved]
  - Tubulointerstitial nephritis [Not Recovered/Not Resolved]
  - Renal tubular atrophy [Not Recovered/Not Resolved]
  - Acute kidney injury [Not Recovered/Not Resolved]
